FAERS Safety Report 25158017 (Version 1)
Quarter: 2025Q2

REPORT INFORMATION
  Report Type: Spontaneous
  Country: CH (occurrence: CH)
  Receive Date: 20250404
  Receipt Date: 20250404
  Transmission Date: 20250717
  Serious: Yes (Hospitalization, Other)
  Sender: ABBVIE
  Company Number: CH-ABBVIE-6203650

PATIENT
  Age: 22 Year
  Sex: Male

DRUGS (14)
  1. HUMIRA [Suspect]
     Active Substance: ADALIMUMAB
     Indication: Crohn^s disease
     Route: 058
     Dates: start: 202403, end: 202409
  2. HUMIRA [Suspect]
     Active Substance: ADALIMUMAB
     Route: 058
     Dates: start: 202106, end: 202402
  3. HUMIRA [Suspect]
     Active Substance: ADALIMUMAB
     Dosage: EVERY 10 DAY
     Route: 058
     Dates: start: 2019
  4. ENTYVIO [Suspect]
     Active Substance: VEDOLIZUMAB
     Indication: Crohn^s disease
     Route: 042
     Dates: start: 202409, end: 202409
  5. ENTYVIO [Suspect]
     Active Substance: VEDOLIZUMAB
     Indication: Crohn^s disease
     Route: 058
     Dates: start: 201911, end: 202309
  6. PREDNISONE [Concomitant]
     Active Substance: PREDNISONE
     Indication: Crohn^s disease
     Dates: end: 2023
  7. VITAMIN D [Concomitant]
     Active Substance: VITAMIN D NOS
     Indication: Hypocalcaemia
     Dates: start: 2023
  8. RINVOQ [Suspect]
     Active Substance: UPADACITINIB
     Indication: Crohn^s disease
     Route: 048
     Dates: start: 202410, end: 20241211
  9. RINVOQ [Suspect]
     Active Substance: UPADACITINIB
     Indication: Crohn^s disease
     Route: 048
  10. AZATHIOPRINE [Concomitant]
     Active Substance: AZATHIOPRINE
     Indication: Crohn^s disease
     Dates: start: 201808
  11. AZATHIOPRINE [Concomitant]
     Active Substance: AZATHIOPRINE
     Indication: Crohn^s disease
     Dates: start: 202106, end: 2023
  12. IRON [Concomitant]
     Active Substance: IRON
     Indication: Anaemia
     Dates: start: 2023
  13. FOLIC ACID [Concomitant]
     Active Substance: FOLIC ACID
     Indication: Folate deficiency
     Dates: start: 2023
  14. STELARA [Suspect]
     Active Substance: USTEKINUMAB
     Indication: Product used for unknown indication
     Route: 065
     Dates: start: 202403

REACTIONS (26)
  - Small intestinal stenosis [Unknown]
  - Iron deficiency [Unknown]
  - Shock haemorrhagic [Unknown]
  - Pain [Unknown]
  - Small intestinal ulcer haemorrhage [Unknown]
  - Crohn^s disease [Unknown]
  - COVID-19 [Unknown]
  - Anaemia [Unknown]
  - Injection site reaction [Unknown]
  - Small intestinal stenosis [Unknown]
  - Vomiting [Unknown]
  - Parenteral nutrition [Unknown]
  - Diarrhoea [Unknown]
  - Drug ineffective [Unknown]
  - Folate deficiency [Unknown]
  - Seizure [Unknown]
  - Crohn^s disease [Unknown]
  - Enteritis [Unknown]
  - Crohn^s disease [Unknown]
  - Abdominal pain [Unknown]
  - Anaphylactic reaction [Unknown]
  - Drug ineffective [Unknown]
  - Abdominal pain [Unknown]
  - Weight decreased [Unknown]
  - Vomiting [Unknown]
  - Hypocalcaemia [Unknown]

NARRATIVE: CASE EVENT DATE: 20201201
